FAERS Safety Report 17671300 (Version 1)
Quarter: 2020Q2

REPORT INFORMATION
  Report Type: Spontaneous
  Country: CH (occurrence: CH)
  Receive Date: 20200415
  Receipt Date: 20200415
  Transmission Date: 20200713
  Serious: Yes (Hospitalization)
  Sender: FDA-Public Use
  Company Number: CH-BAXTER-2020BAX007847

PATIENT
  Age: 59 Year
  Sex: Female

DRUGS (19)
  1. DOXIL [Suspect]
     Active Substance: DOXORUBICIN HYDROCHLORIDE
     Indication: HODGKIN^S DISEASE
     Dosage: ABVD CHEMOTHERAPY, FIRST CYCLE
     Route: 065
     Dates: start: 20191114, end: 20191114
  2. URSOFALK [Concomitant]
     Active Substance: URSODIOL
     Indication: PRODUCT USED FOR UNKNOWN INDICATION
     Route: 065
  3. EUTHYROX [Concomitant]
     Active Substance: LEVOTHYROXINE SODIUM
     Indication: PRODUCT USED FOR UNKNOWN INDICATION
     Route: 065
  4. DACARBAZINE. [Suspect]
     Active Substance: DACARBAZINE
     Dosage: DOSE RE-INTRODUCED
     Route: 065
  5. DOXIL [Suspect]
     Active Substance: DOXORUBICIN HYDROCHLORIDE
     Indication: LYMPHADENOPATHY
     Dosage: ABVD CHEMOTHERAPY, SECOND CYCLE
     Route: 065
     Dates: start: 20200121, end: 20200121
  6. BLEOMYCIN BAXTER, TROCKENSUBSTANZ ZUR PARENTERALEN ANWENDUNG [Suspect]
     Active Substance: BLEOMYCIN SULFATE
     Indication: HODGKIN^S DISEASE
     Dosage: ABVD CHEMOTHERAPY, FIRST CYCLE
     Route: 065
     Dates: start: 20191114, end: 20191114
  7. DACARBAZINE. [Suspect]
     Active Substance: DACARBAZINE
     Indication: LYMPHADENOPATHY
     Dosage: ABVD CHEMOTHERAPY, SECOND CYCLE
     Route: 065
     Dates: start: 20200121, end: 20200121
  8. SANDIMMUN NEORAL [Concomitant]
     Active Substance: CYCLOSPORINE
     Indication: PRODUCT USED FOR UNKNOWN INDICATION
     Route: 065
  9. XIFAXAN [Concomitant]
     Active Substance: RIFAXIMIN
     Indication: PRODUCT USED FOR UNKNOWN INDICATION
     Route: 065
  10. VINBLASTINE [Suspect]
     Active Substance: VINBLASTINE
     Indication: LYMPHADENOPATHY
     Dosage: ABVD CHEMOTHERAPY, SECOND CYCLE
     Route: 065
     Dates: start: 20200121, end: 20200121
  11. ASPIRIN CARDIO [Concomitant]
     Active Substance: ASPIRIN
     Indication: PRODUCT USED FOR UNKNOWN INDICATION
     Route: 065
  12. BLEOMYCIN BAXTER, TROCKENSUBSTANZ ZUR PARENTERALEN ANWENDUNG [Suspect]
     Active Substance: BLEOMYCIN SULFATE
     Indication: LYMPHADENOPATHY
     Dosage: ABVD CHEMOTHERAPY, SECOND CYCLE
     Route: 065
     Dates: start: 20200121, end: 20200121
  13. VINBLASTINE [Suspect]
     Active Substance: VINBLASTINE
     Dosage: DOSE RE-INTRODUCED
     Route: 065
  14. DACARBAZINE. [Suspect]
     Active Substance: DACARBAZINE
     Indication: HODGKIN^S DISEASE
     Dosage: ABVD CHEMOTHERAPY, FIRST CYCLE
     Route: 065
     Dates: start: 20191114, end: 20191114
  15. CIRCADIN [Concomitant]
     Active Substance: MELATONIN
     Indication: PRODUCT USED FOR UNKNOWN INDICATION
     Route: 065
  16. BLEOMYCIN BAXTER, TROCKENSUBSTANZ ZUR PARENTERALEN ANWENDUNG [Suspect]
     Active Substance: BLEOMYCIN SULFATE
     Dosage: DOSE RE-INTRODUCED
     Route: 065
  17. VINBLASTINE [Suspect]
     Active Substance: VINBLASTINE
     Indication: HODGKIN^S DISEASE
     Dosage: ABVD CHEMOTHERAPY, FIRST CYCLE
     Route: 065
     Dates: start: 20191114, end: 20191114
  18. SALOFALK [Concomitant]
     Indication: PRODUCT USED FOR UNKNOWN INDICATION
     Route: 065
  19. DOXIL [Suspect]
     Active Substance: DOXORUBICIN HYDROCHLORIDE
     Dosage: DOSE RE-INTRODUCED
     Route: 065

REACTIONS (4)
  - Pleural effusion [Recovered/Resolved]
  - Myocarditis [Recovered/Resolved]
  - Pneumocystis jirovecii pneumonia [Recovered/Resolved]
  - Pericardial effusion [Recovered/Resolved]

NARRATIVE: CASE EVENT DATE: 20200306
